FAERS Safety Report 6445940-7 (Version None)
Quarter: 2009Q4

REPORT INFORMATION
  Report Type: 
  Country: None (occurrence: None)
  Receive Date: 20091119
  Receipt Date: 20090310
  Transmission Date: 20100525
  Serious: No
  Sender: FDA-Public Use
  Company Number: A0767518A

PATIENT
  Age: 40 Year
  Sex: Female
  Weight: 51.8 kg

DRUGS (1)
  1. BUPROPION HCL [Suspect]
     Indication: DEPRESSION
     Dosage: 100MG TWICE PER DAY
     Route: 048
     Dates: start: 20090107, end: 20090121

REACTIONS (13)
  - ARTHRALGIA [None]
  - BACK PAIN [None]
  - BLOOD PRESSURE INCREASED [None]
  - CHILLS [None]
  - FLATULENCE [None]
  - FLUSHING [None]
  - HEADACHE [None]
  - LOCAL SWELLING [None]
  - MIGRAINE [None]
  - NAUSEA [None]
  - OROPHARYNGEAL PAIN [None]
  - PANIC ATTACK [None]
  - TREMOR [None]
